FAERS Safety Report 11637573 (Version 5)
Quarter: 2015Q4

REPORT INFORMATION
  Report Type: Spontaneous
  Country: US (occurrence: US)
  Receive Date: 20151016
  Receipt Date: 20151217
  Transmission Date: 20160304
  Serious: Yes (Other)
  Sender: FDA-Public Use
  Company Number: US-ENDO PHARMACEUTICALS INC.-2015-003369

PATIENT
  Age: 60 Year
  Sex: Female
  Weight: 108.96 kg

DRUGS (8)
  1. LIDODERM [Concomitant]
     Active Substance: LIDOCAINE
     Indication: FIBROMYALGIA
     Route: 061
     Dates: start: 2005
  2. LIDODERM [Concomitant]
     Active Substance: LIDOCAINE
     Indication: MYALGIA
  3. LIDODERM [Concomitant]
     Active Substance: LIDOCAINE
     Indication: MUSCLE SPASMS
  4. LIDODERM [Concomitant]
     Active Substance: LIDOCAINE
     Indication: SPINAL CORD INJURY
  5. ALPRAZOLAM TABLETS 2 MG [Suspect]
     Active Substance: ALPRAZOLAM
     Route: 048
     Dates: start: 20140722
  6. ALBUTEROL. [Concomitant]
     Active Substance: ALBUTEROL
     Indication: ASTHMA
     Route: 045
  7. ALPRAZOLAM TABLETS 2 MG [Suspect]
     Active Substance: ALPRAZOLAM
     Indication: POST-TRAUMATIC STRESS DISORDER
     Route: 048
     Dates: start: 2005
  8. ALPRAZOLAM TABLETS 2 MG [Suspect]
     Active Substance: ALPRAZOLAM
     Route: 048
     Dates: start: 20151011, end: 20151011

REACTIONS (21)
  - Streptococcal infection [Not Recovered/Not Resolved]
  - Unevaluable event [Unknown]
  - Blood pressure increased [Unknown]
  - Ear pain [Not Recovered/Not Resolved]
  - Femur fracture [Not Recovered/Not Resolved]
  - Heart rate increased [Unknown]
  - Mouth swelling [Not Recovered/Not Resolved]
  - Contusion [Not Recovered/Not Resolved]
  - Peripheral arterial occlusive disease [Not Recovered/Not Resolved]
  - Thrombosis [Not Recovered/Not Resolved]
  - Body height decreased [Not Recovered/Not Resolved]
  - Off label use [Not Recovered/Not Resolved]
  - Cyst [Not Recovered/Not Resolved]
  - Ear infection [Not Recovered/Not Resolved]
  - Varicose vein [Not Recovered/Not Resolved]
  - Cerebrovascular accident [Unknown]
  - Intentional product use issue [Recovered/Resolved]
  - Insomnia [Not Recovered/Not Resolved]
  - Drug ineffective [Unknown]
  - Cardiac disorder [Unknown]
  - Stomatitis [Not Recovered/Not Resolved]

NARRATIVE: CASE EVENT DATE: 2005
